FAERS Safety Report 5201416-6 (Version None)
Quarter: 2007Q1

REPORT INFORMATION
  Report Type: 
  Country: None (occurrence: None)
  Receive Date: 20070104
  Receipt Date: 20061220
  Transmission Date: 20070707
  Serious: Yes (Hospitalization)
  Sender: FDA-Public Use
  Company Number: 2006BI017116

PATIENT
  Age: 31 Year
  Sex: Female

DRUGS (8)
  1. NATALIZUMAB [Suspect]
     Indication: MULTIPLE SCLEROSIS
     Dosage: IV
     Route: 042
     Dates: start: 20050101, end: 20050101
  2. NATALIZUMAB [Suspect]
     Indication: MULTIPLE SCLEROSIS
     Dosage: 300 MG; IV
     Route: 042
     Dates: start: 20061119, end: 20061119
  3. LAMICTAL [Concomitant]
  4. LEXAPRO [Concomitant]
  5. SYNTHROID [Concomitant]
  6. BACLOFEN [Concomitant]
  7. ATENOLOL [Concomitant]
  8. TYLENOL [Concomitant]

REACTIONS (11)
  - ANAPHYLACTIC REACTION [None]
  - BURNING SENSATION [None]
  - CARDIO-RESPIRATORY ARREST [None]
  - CONVULSION [None]
  - FEELING ABNORMAL [None]
  - FEELING HOT [None]
  - HYPERTENSION [None]
  - HYPOKALAEMIA [None]
  - LOSS OF CONSCIOUSNESS [None]
  - PULSE ABSENT [None]
  - RESPIRATORY FAILURE [None]
